FAERS Safety Report 6732716-6 (Version None)
Quarter: 2010Q2

REPORT INFORMATION
  Report Type: 
  Country: None (occurrence: None)
  Receive Date: 20100514
  Receipt Date: 20100504
  Transmission Date: 20101027
  Serious: Yes (Other)
  Sender: FDA-Public Use
  Company Number: TPH-00254

PATIENT
  Age: 18 Year
  Sex: Female

DRUGS (1)
  1. TRIQUILAR [Suspect]
     Indication: DYSMENORRHOEA
     Dosage: 1 DF, ORAL
     Route: 048
     Dates: start: 20090721

REACTIONS (1)
  - SYNCOPE [None]
